FAERS Safety Report 18481667 (Version 1)
Quarter: 2020Q4

REPORT INFORMATION
  Report Type: Spontaneous
  Country: CN (occurrence: CN)
  Receive Date: 20201109
  Receipt Date: 20201109
  Transmission Date: 20210114
  Serious: Yes (Other)
  Sender: FDA-Public Use
  Company Number: CN-ELI_LILLY_AND_COMPANY-CN202011000342

PATIENT
  Age: 43 Year
  Sex: Male
  Weight: 74 kg

DRUGS (4)
  1. CARBOPLATIN. [Concomitant]
     Active Substance: CARBOPLATIN
     Indication: LUNG NEOPLASM MALIGNANT
     Dosage: 600 MG, DAILY
     Route: 041
     Dates: start: 20200917, end: 20200917
  2. GLUCOSE [Concomitant]
     Active Substance: DEXTROSE
     Indication: LUNG NEOPLASM MALIGNANT
     Dosage: 250 ML, DAILY
     Route: 041
     Dates: start: 20200917, end: 20200917
  3. ALIMTA [Suspect]
     Active Substance: PEMETREXED DISODIUM
     Indication: LUNG NEOPLASM MALIGNANT
     Dosage: 950 MG, DAILY
     Route: 041
     Dates: start: 20200917, end: 20200917
  4. SODIUM CHLORIDE 0.9% [Concomitant]
     Active Substance: SODIUM CHLORIDE
     Indication: LUNG NEOPLASM MALIGNANT
     Dosage: 100 ML, DAILY
     Route: 041
     Dates: start: 20200917, end: 20200917

REACTIONS (2)
  - Off label use [Unknown]
  - Hepatic failure [Recovering/Resolving]

NARRATIVE: CASE EVENT DATE: 20201009
